FAERS Safety Report 8234923-2 (Version None)
Quarter: 2012Q1

REPORT INFORMATION
  Report Type: 
  Country: None (occurrence: None)
  Receive Date: 20120326
  Receipt Date: 20120322
  Transmission Date: 20120608
  Serious: No
  Sender: FDA-Public Use
  Company Number: US-BAYER-2012-028975

PATIENT
  Sex: Male
  Weight: 102.4 kg

DRUGS (2)
  1. ULTRAVIST 150 [Suspect]
     Indication: COMPUTERISED TOMOGRAM
     Dosage: 120 ML, ONCE
     Route: 042
     Dates: start: 20120322
  2. BARIUM [Concomitant]
     Indication: COMPUTERISED TOMOGRAM

REACTIONS (1)
  - URTICARIA [None]
